FAERS Safety Report 23084909 (Version 2)
Quarter: 2023Q4

REPORT INFORMATION
  Report Type: Report from Study
  Country: US (occurrence: None)
  Receive Date: 20231019
  Receipt Date: 20231215
  Transmission Date: 20240110
  Serious: Yes (Other)
  Sender: FDA-Public Use
  Company Number: 2023A232345

PATIENT
  Age: 73 Year
  Sex: Male

DRUGS (1)
  1. FARXIGA [Suspect]
     Active Substance: DAPAGLIFLOZIN PROPANEDIOL
     Indication: Kidney infection
     Route: 048
     Dates: start: 20230330, end: 20230922

REACTIONS (5)
  - Angioedema [Recovered/Resolved]
  - Burning sensation [Unknown]
  - Pruritus [Unknown]
  - Swollen tongue [Unknown]
  - Inflammation [Unknown]

NARRATIVE: CASE EVENT DATE: 20230922
